FAERS Safety Report 4623488-X (Version None)
Quarter: 2005Q1

REPORT INFORMATION
  Report Type: 
  Country: None (occurrence: None)
  Receive Date: 20050330
  Receipt Date: 20050314
  Transmission Date: 20050727
  Serious: Yes (Death, Hospitalization)
  Sender: FDA-Public Use
  Company Number: 200510312BVD

PATIENT
  Age: 61 Year
  Sex: Male

DRUGS (3)
  1. CIPROFLOXACIN [Suspect]
     Indication: LEUKOPENIA
     Dates: start: 20041001
  2. CIPROHEXAL (CIPROFLOXACIN) [Suspect]
     Indication: URINARY TRACT INFECTION
     Dates: start: 20040501
  3. FIRIN (NORFLOXACIN) [Suspect]
     Indication: URINARY TRACT INFECTION
     Dates: start: 20040601

REACTIONS (14)
  - APLASTIC ANAEMIA [None]
  - CARDIOVASCULAR DISORDER [None]
  - CATHETER SEPSIS [None]
  - CHILLS [None]
  - HAEMATOMA [None]
  - HAEMORRHAGIC DIATHESIS [None]
  - INFLAMMATION [None]
  - MULTI-ORGAN FAILURE [None]
  - PANCYTOPENIA [None]
  - PNEUMONIA FUNGAL [None]
  - POLLAKIURIA [None]
  - PROSTATITIS [None]
  - PYREXIA [None]
  - THERAPY NON-RESPONDER [None]
